FAERS Safety Report 16561189 (Version 2)
Quarter: 2019Q4

REPORT INFORMATION
  Report Type: Report from Study
  Country: IE (occurrence: IE)
  Receive Date: 20190711
  Receipt Date: 20191226
  Transmission Date: 20200122
  Serious: Yes (Other)
  Sender: FDA-Public Use
  Company Number: IE-BRISTOL-MYERS SQUIBB COMPANY-BMS-2019-064236

PATIENT
  Age: 77 Year
  Sex: Male

DRUGS (1)
  1. ABATACEPT [Suspect]
     Active Substance: ABATACEPT
     Indication: RHEUMATOID ARTHRITIS
     Dosage: UNK
     Route: 065
     Dates: start: 20190628

REACTIONS (4)
  - Headache [Unknown]
  - Nausea [Unknown]
  - Accidental exposure to product [Unknown]
  - Malaise [Unknown]

NARRATIVE: CASE EVENT DATE: 20190630
